FAERS Safety Report 6649241-3 (Version None)
Quarter: 2010Q1

REPORT INFORMATION
  Report Type: 
  Country: None (occurrence: None)
  Receive Date: 20100319
  Receipt Date: 20091218
  Transmission Date: 20100710
  Serious: Yes (Congenital Anomaly, Other)
  Sender: FDA-Public Use
  Company Number: AUR-APL-2010-00738

PATIENT
  Sex: Male
  Weight: 2.93 kg

DRUGS (2)
  1. ZIDOVUDINE [Suspect]
     Indication: HIV INFECTION
     Dosage: TRANSPLACENT
     Route: 064
     Dates: start: 20060215
  2. VIRACEPT [Suspect]
     Indication: HIV INFECTION
     Dosage: TRANSPLACENT
     Route: 064
     Dates: start: 20060215

REACTIONS (2)
  - HAEMANGIOMA CONGENITAL [None]
  - MATERNAL DRUGS AFFECTING FOETUS [None]
